FAERS Safety Report 6378674-8 (Version None)
Quarter: 2009Q3

REPORT INFORMATION
  Report Type: 
  Country: None (occurrence: None)
  Receive Date: 20090928
  Receipt Date: 20090916
  Transmission Date: 20100115
  Serious: Yes (Hospitalization, Other)
  Sender: FDA-Public Use
  Company Number: GB-ROCHE-657031

PATIENT
  Age: 34 Year
  Sex: Female

DRUGS (5)
  1. TAMIFLU [Suspect]
     Indication: DRUG USE FOR UNKNOWN INDICATION
     Route: 065
     Dates: start: 20090817, end: 20090818
  2. PROGRAF [Concomitant]
  3. OMEPRAZOLE [Concomitant]
  4. PREDNISOLONE [Concomitant]
  5. ADALAT [Concomitant]

REACTIONS (4)
  - BLISTER [None]
  - RASH GENERALISED [None]
  - RASH PRURITIC [None]
  - SCAB [None]
